FAERS Safety Report 4979056-3 (Version None)
Quarter: 2006Q2

REPORT INFORMATION
  Report Type: 
  Country: None (occurrence: None)
  Receive Date: 20060420
  Receipt Date: 20060420
  Transmission Date: 20061013
  Serious: Yes (Death)
  Sender: FDA-Public Use
  Company Number: None

PATIENT
  Age: 5 Year
  Sex: Male

DRUGS (2)
  1. DISODIUM EDETATE [Suspect]
     Dosage: INJECTABLE
  2. CALCIUM DISODIUM VERSENATE [Suspect]
     Dosage: INJECTABLE

REACTIONS (5)
  - ACCIDENTAL EXPOSURE [None]
  - BLOOD CALCIUM DECREASED [None]
  - MEDICATION ERROR [None]
  - UNEVALUABLE EVENT [None]
  - WRONG DRUG ADMINISTERED [None]
